FAERS Safety Report 9507490 (Version 2)
Quarter: 2013Q4

REPORT INFORMATION
  Report Type: Spontaneous
  Country: FR (occurrence: FR)
  Receive Date: 20130909
  Receipt Date: 20131017
  Transmission Date: 20140711
  Serious: Yes (Death, Other)
  Sender: FDA-Public Use
  Company Number: FR-ELI_LILLY_AND_COMPANY-FR201308008936

PATIENT
  Age: 83 Year
  Sex: Female

DRUGS (4)
  1. PROZAC [Suspect]
     Indication: BIPOLAR I DISORDER
     Dosage: 1 DF, UNKNOWN
     Route: 065
  2. CRIZOTINIB [Interacting]
     Indication: NEOPLASM MALIGNANT
     Dosage: 500 MG, QD
     Route: 048
     Dates: start: 20121123
  3. CRIZOTINIB [Interacting]
     Dosage: 500 MG, BID
     Route: 048
     Dates: start: 20121123
  4. SERESTA [Concomitant]
     Indication: DEPRESSION
     Dosage: 10 MG, QD
     Route: 065

REACTIONS (4)
  - Cachexia [Fatal]
  - Multi-organ failure [Fatal]
  - Depression [Fatal]
  - Drug interaction [Unknown]
